FAERS Safety Report 6611447-7 (Version None)
Quarter: 2010Q1

REPORT INFORMATION
  Report Type: 
  Country: None (occurrence: None)
  Receive Date: 20100301
  Receipt Date: 20100301
  Transmission Date: 20100710
  Serious: Yes (Hospitalization)
  Sender: FDA-Public Use
  Company Number: None

PATIENT
  Age: 76 Year
  Sex: Male
  Weight: 58 kg

DRUGS (2)
  1. ENOXAPARIN SODIUM [Suspect]
     Indication: PULMONARY EMBOLISM
     Dosage: 80MG BID SQ
     Route: 058
     Dates: start: 20100102, end: 20100103
  2. ENOXAPARIN SODIUM [Suspect]
     Indication: THROMBOSIS PROPHYLAXIS
     Dosage: 80MG BID SQ
     Route: 058
     Dates: start: 20100102, end: 20100103

REACTIONS (2)
  - HEPARIN-INDUCED THROMBOCYTOPENIA [None]
  - PULMONARY EMBOLISM [None]
